FAERS Safety Report 5188009-4 (Version None)
Quarter: 2006Q4

REPORT INFORMATION
  Report Type: 
  Country: None (occurrence: None)
  Receive Date: 20061214
  Receipt Date: 20061214
  Transmission Date: 20070319
  Serious: Yes (Other)
  Sender: FDA-Public Use
  Company Number: None

PATIENT
  Sex: Male

DRUGS (3)
  1. CELEXA [Suspect]
     Indication: DEPRESSION
     Dosage: 20MG QD PO
     Route: 048
     Dates: start: 20060123, end: 20060130
  2. SUBOXONE [Concomitant]
  3. CLONIDINE [Concomitant]

REACTIONS (1)
  - PITTING OEDEMA [None]
